FAERS Safety Report 7236194-2 (Version None)
Quarter: 2010Q4

REPORT INFORMATION
  Report Type: 
  Country: None (occurrence: None)
  Receive Date: 20101130
  Receipt Date: 20100414
  Transmission Date: 20110411
  Serious: Yes (Other)
  Sender: FDA-Public Use
  Company Number: 2010BH009972

PATIENT
  Age: 12 Month
  Sex: Male
  Weight: 11.36 kg

DRUGS (9)
  1. ADVATE [Suspect]
     Indication: FACTOR VIII DEFICIENCY
     Dosage: 474 IU;ONCE;IV ; 474 IU;ONCE;IV ; 776 IU;AS NEEDED;IV
     Route: 042
     Dates: start: 20100217, end: 20100217
  2. ADVATE [Suspect]
     Indication: HAEMORRHAGE
     Dosage: 474 IU;ONCE;IV ; 474 IU;ONCE;IV ; 776 IU;AS NEEDED;IV
     Route: 042
     Dates: start: 20100217, end: 20100217
  3. ADVATE [Suspect]
     Indication: HAEMORRHAGE PROPHYLAXIS
     Dosage: 474 IU;ONCE;IV ; 474 IU;ONCE;IV ; 776 IU;AS NEEDED;IV
     Route: 042
     Dates: start: 20100217, end: 20100217
  4. ADVATE [Suspect]
     Indication: FACTOR VIII DEFICIENCY
     Dosage: 474 IU;ONCE;IV ; 474 IU;ONCE;IV ; 776 IU;AS NEEDED;IV
     Route: 042
     Dates: start: 20100310, end: 20100310
  5. ADVATE [Suspect]
     Indication: HAEMORRHAGE
     Dosage: 474 IU;ONCE;IV ; 474 IU;ONCE;IV ; 776 IU;AS NEEDED;IV
     Route: 042
     Dates: start: 20100310, end: 20100310
  6. ADVATE [Suspect]
     Indication: HAEMORRHAGE PROPHYLAXIS
     Dosage: 474 IU;ONCE;IV ; 474 IU;ONCE;IV ; 776 IU;AS NEEDED;IV
     Route: 042
     Dates: start: 20100310, end: 20100310
  7. ADVATE [Suspect]
     Indication: FACTOR VIII DEFICIENCY
     Dosage: 474 IU;ONCE;IV ; 474 IU;ONCE;IV ; 776 IU;AS NEEDED;IV
     Route: 042
     Dates: start: 20100316, end: 20100316
  8. ADVATE [Suspect]
     Indication: HAEMORRHAGE
     Dosage: 474 IU;ONCE;IV ; 474 IU;ONCE;IV ; 776 IU;AS NEEDED;IV
     Route: 042
     Dates: start: 20100316, end: 20100316
  9. ADVATE [Suspect]
     Indication: HAEMORRHAGE PROPHYLAXIS
     Dosage: 474 IU;ONCE;IV ; 474 IU;ONCE;IV ; 776 IU;AS NEEDED;IV
     Route: 042
     Dates: start: 20100316, end: 20100316

REACTIONS (1)
  - FACTOR VIII INHIBITION [None]
